FAERS Safety Report 17174934 (Version 1)
Quarter: 2019Q4

REPORT INFORMATION
  Report Type: Report from Study
  Country: FI (occurrence: FI)
  Receive Date: 20191219
  Receipt Date: 20191219
  Transmission Date: 20200122
  Serious: Yes (Other)
  Sender: FDA-Public Use
  Company Number: FI-MYLANLABS-2019M1125124

PATIENT
  Age: 56 Year
  Sex: Female

DRUGS (1)
  1. LEPONEX [Suspect]
     Active Substance: CLOZAPINE
     Indication: PRODUCT USED FOR UNKNOWN INDICATION
     Dosage: 300 MILLIGRAM, QD (AT THE TIME OF EVENT START)

REACTIONS (5)
  - Pyrexia [Recovering/Resolving]
  - Pleural effusion [Unknown]
  - C-reactive protein increased [Recovering/Resolving]
  - Oedema [Unknown]
  - Eosinophilia [Unknown]
